FAERS Safety Report 19679407 (Version 6)
Quarter: 2021Q3

REPORT INFORMATION
  Report Type: Spontaneous
  Country: US (occurrence: US)
  Receive Date: 20210809
  Receipt Date: 20210913
  Transmission Date: 20211014
  Serious: Yes (Other)
  Sender: FDA-Public Use
  Company Number: US-009507513-2108USA001379

PATIENT
  Age: 57 Year
  Sex: Female
  Weight: 61.69 kg

DRUGS (3)
  1. WIXELA INHUB [Suspect]
     Active Substance: FLUTICASONE PROPIONATE\SALMETEROL XINAFOATE
     Indication: CHRONIC OBSTRUCTIVE PULMONARY DISEASE
     Dosage: 250/50MCG SHE THINKS AND IT WAS ONE PUFF DAILY.
     Dates: start: 2020, end: 2021
  2. PROVENTIL [Suspect]
     Active Substance: ALBUTEROL
     Indication: CHRONIC OBSTRUCTIVE PULMONARY DISEASE
     Dosage: UNKNOWN DOSE ONE PUFF ONCE DAILY
     Route: 055
     Dates: start: 201812, end: 2019
  3. SYMBICORT [Suspect]
     Active Substance: BUDESONIDE\FORMOTEROL FUMARATE DIHYDRATE
     Indication: CHRONIC OBSTRUCTIVE PULMONARY DISEASE
     Dosage: UNKNOWN DOSE. ONE PUFF DAILY INHALED.(FORMULATION: INHALER)
     Route: 055
     Dates: start: 2018, end: 2018

REACTIONS (6)
  - Laryngeal cancer [Unknown]
  - Candida infection [Unknown]
  - Product use in unapproved indication [Unknown]
  - Product label issue [Unknown]
  - Drug ineffective [Unknown]
  - Inappropriate schedule of product administration [Unknown]

NARRATIVE: CASE EVENT DATE: 201812
